FAERS Safety Report 12338021 (Version 1)
Quarter: 2016Q2

REPORT INFORMATION
  Report Type: Spontaneous
  Country: IE (occurrence: IE)
  Receive Date: 20160505
  Receipt Date: 20160505
  Transmission Date: 20160815
  Serious: Yes (Hospitalization, Other)
  Sender: FDA-Public Use
  Company Number: IE-AMGEN-IRLSP2016055236

PATIENT
  Age: 69 Year
  Sex: Female

DRUGS (1)
  1. PROLIA [Suspect]
     Active Substance: DENOSUMAB
     Indication: PRODUCT USED FOR UNKNOWN INDICATION
     Dosage: UNK UNK, Q6MO
     Route: 058
     Dates: start: 2014

REACTIONS (12)
  - Kidney infection [Unknown]
  - Renal disorder [Unknown]
  - Arthralgia [Unknown]
  - Skin disorder [Unknown]
  - Pain in extremity [Unknown]
  - Hospitalisation [Unknown]
  - Feeling hot [Unknown]
  - Incontinence [Unknown]
  - Blood urine present [Unknown]
  - Bladder prolapse [Unknown]
  - Urinary tract infection [Unknown]
  - Anal haemorrhage [Unknown]
